FAERS Safety Report 20772808 (Version 1)
Quarter: 2022Q2

REPORT INFORMATION
  Report Type: Other
  Country: CA (occurrence: CA)
  Receive Date: 20220502
  Receipt Date: 20220502
  Transmission Date: 20220720
  Serious: Yes (Hospitalization, Disabling, Other)
  Sender: FDA-Public Use
  Company Number: CA-APOTEX-2022AP006600

PATIENT
  Age: 60 Year
  Sex: Male
  Weight: 109 kg

DRUGS (1)
  1. AMOXICILLIN\CLAVULANATE POTASSIUM [Suspect]
     Active Substance: AMOXICILLIN\CLAVULANATE POTASSIUM
     Indication: Colitis
     Dosage: 1 DOSAGE FORM, BID
     Route: 048

REACTIONS (5)
  - Haematochezia [Recovering/Resolving]
  - Asthenia [Recovering/Resolving]
  - Clostridium test positive [Recovering/Resolving]
  - Fatigue [Recovering/Resolving]
  - Abdominal pain lower [Recovering/Resolving]
